FAERS Safety Report 7349388-2 (Version None)
Quarter: 2011Q1

REPORT INFORMATION
  Report Type: 
  Country: None (occurrence: None)
  Receive Date: 20110314
  Receipt Date: 20100312
  Transmission Date: 20110831
  Serious: No
  Sender: FDA-Public Use
  Company Number: US-ABBOTT-10P-163-0632409-00

PATIENT
  Age: 44 Year
  Sex: Female

DRUGS (5)
  1. DEPAKOTE [Suspect]
     Indication: BIPOLAR DISORDER
     Route: 048
  2. DEPAKOTE [Suspect]
     Indication: MENTAL RETARDATION
  3. DEPAKOTE [Suspect]
     Indication: MOOD SWINGS
  4. SERAQUEL [Concomitant]
     Indication: PRODUCT USED FOR UNKNOWN INDICATION
  5. DEPAKOTE [Suspect]
     Indication: AGITATION

REACTIONS (1)
  - HEPATIC ENZYME INCREASED [None]
